FAERS Safety Report 10523033 (Version 9)
Quarter: 2021Q1

REPORT INFORMATION
  Report Type: Spontaneous
  Country: US (occurrence: US)
  Receive Date: 20141016
  Receipt Date: 20210106
  Transmission Date: 20210419
  Serious: Yes (Other)
  Sender: FDA-Public Use
  Company Number: US-PFIZER INC-2014280916

PATIENT
  Age: 59 Year
  Sex: Female
  Weight: 59 kg

DRUGS (3)
  1. SUTENT [Suspect]
     Active Substance: SUNITINIB MALATE
     Indication: GASTROINTESTINAL STROMAL TUMOUR
     Dosage: 37.5 MG, CYCLIC (DAILY FOR 7 DAYS OFF FOR 5 DAYS, EVERY 8TH WEEK AN EXTRA 7 DAYS OFF)
     Route: 048
     Dates: start: 20090101
  2. LEVOTHYROXINE. [Concomitant]
     Active Substance: LEVOTHYROXINE
     Dosage: UNK
     Dates: start: 20110103
  3. SUTENT [Suspect]
     Active Substance: SUNITINIB MALATE
     Dosage: 37.5 MG, CYCLIC (3 CAPSULES OF 12.5 MG; DAILY FOR 7 DAYS AND OFF FOR 5 DAYS)

REACTIONS (31)
  - Basal cell carcinoma [Recovered/Resolved]
  - Bone swelling [Unknown]
  - Oral pain [Unknown]
  - Temperature intolerance [Unknown]
  - Off label use [Unknown]
  - Palmar-plantar erythrodysaesthesia syndrome [Not Recovered/Not Resolved]
  - Pain [Unknown]
  - Weight decreased [Unknown]
  - Taste disorder [Unknown]
  - Poor quality sleep [Unknown]
  - Hyperkeratosis [Unknown]
  - Haemorrhagic diathesis [Unknown]
  - Impaired healing [Unknown]
  - Pain in extremity [Recovering/Resolving]
  - Arthralgia [Not Recovered/Not Resolved]
  - Lymphadenopathy [Not Recovered/Not Resolved]
  - Diarrhoea [Not Recovered/Not Resolved]
  - Fatigue [Unknown]
  - Swelling face [Unknown]
  - Skin exfoliation [Not Recovered/Not Resolved]
  - Dental caries [Unknown]
  - Tongue discomfort [Unknown]
  - Myalgia [Not Recovered/Not Resolved]
  - Headache [Not Recovered/Not Resolved]
  - Gingival pain [Not Recovered/Not Resolved]
  - White blood cell count decreased [Recovering/Resolving]
  - Second primary malignancy [Recovered/Resolved]
  - Pain in jaw [Not Recovered/Not Resolved]
  - Gingival recession [Unknown]
  - Gingival bleeding [Unknown]
  - Skin reaction [Unknown]

NARRATIVE: CASE EVENT DATE: 20090101
